FAERS Safety Report 24729383 (Version 8)
Quarter: 2025Q2

REPORT INFORMATION
  Report Type: Report from Study
  Country: US (occurrence: US)
  Receive Date: 20241213
  Receipt Date: 20250511
  Transmission Date: 20250716
  Serious: Yes (Death, Hospitalization, Other)
  Sender: ROCHE
  Company Number: US-ROCHE-10000093657

PATIENT
  Age: 61 Year
  Sex: Female

DRUGS (3)
  1. OCREVUS [Suspect]
     Active Substance: OCRELIZUMAB
     Indication: Relapsing-remitting multiple sclerosis
     Route: 042
     Dates: start: 201911, end: 202402
  2. PLEGRIDY [Concomitant]
     Active Substance: PEGINTERFERON BETA-1A
  3. TECFIDERA [Concomitant]
     Active Substance: DIMETHYL FUMARATE

REACTIONS (16)
  - JC polyomavirus test positive [Fatal]
  - Progressive multifocal leukoencephalopathy [Unknown]
  - Gait disturbance [Unknown]
  - Abdominal discomfort [Unknown]
  - Renal cyst [Unknown]
  - Weight decreased [Unknown]
  - Decreased appetite [Unknown]
  - Magnetic resonance imaging abnormal [Unknown]
  - White matter lesion [Unknown]
  - Physical deconditioning [Unknown]
  - Multiple sclerosis [Unknown]
  - Abdominal mass [Unknown]
  - Asthenia [Unknown]
  - Multiple sclerosis [Unknown]
  - Fall [Unknown]
  - Confusional state [Unknown]

NARRATIVE: CASE EVENT DATE: 20240101
